FAERS Safety Report 5209028-5 (Version None)
Quarter: 2007Q1

REPORT INFORMATION
  Report Type: 
  Country: None (occurrence: None)
  Receive Date: 20070116
  Receipt Date: 20070104
  Transmission Date: 20070707
  Serious: Yes (Other)
  Sender: FDA-Public Use
  Company Number: GB-MERCK-0701GBR00051

PATIENT
  Age: 78 Year
  Sex: Female

DRUGS (1)
  1. COSOPT [Suspect]
     Indication: GLAUCOMA
     Route: 047
     Dates: start: 20050101, end: 20070104

REACTIONS (3)
  - DRUG INEFFECTIVE [None]
  - ECTROPION [None]
  - EXCORIATION [None]
